FAERS Safety Report 15789032 (Version 1)
Quarter: 2019Q1

REPORT INFORMATION
  Report Type: Report from Study
  Country: DE (occurrence: DE)
  Receive Date: 20190104
  Receipt Date: 20190104
  Transmission Date: 20190417
  Serious: Yes (Other)
  Sender: FDA-Public Use
  Company Number: DE-DSJP-DSE-2018-148827

PATIENT

DRUGS (6)
  1. EDOXABAN [Suspect]
     Active Substance: EDOXABAN TOSYLATE
     Indication: ATRIAL FIBRILLATION
     Dosage: 30 MG, QD
     Route: 048
     Dates: start: 20170411, end: 20170921
  2. CALCIUM CHANNEL BLOCKERS [Concomitant]
     Active Substance: UNSPECIFIED INGREDIENT
     Indication: HYPERTENSION
  3. BETA BLOCKING AGENTS [Concomitant]
     Active Substance: UNSPECIFIED INGREDIENT
     Indication: HYPERTENSION
  4. EDOXABAN [Suspect]
     Active Substance: EDOXABAN TOSYLATE
     Dosage: 60 MG, QD
     Route: 048
     Dates: start: 20170922, end: 20171022
  5. EDOXABAN [Suspect]
     Active Substance: EDOXABAN TOSYLATE
     Dosage: 30 MG, QD
     Route: 048
     Dates: start: 20171023
  6. THYROID PREPARATIONS [Concomitant]
     Active Substance: UNSPECIFIED INGREDIENT
     Indication: THYROID DISORDER

REACTIONS (1)
  - Skin haemorrhage [Unknown]

NARRATIVE: CASE EVENT DATE: 201709
